FAERS Safety Report 5152463-4 (Version None)
Quarter: 2006Q4

REPORT INFORMATION
  Report Type: 
  Country: None (occurrence: None)
  Receive Date: 20061116
  Receipt Date: 20061025
  Transmission Date: 20070319
  Serious: Yes (Hospitalization, Other)
  Sender: FDA-Public Use
  Company Number: DE-ELI_LILLY_AND_COMPANY-DE200610005035

PATIENT
  Age: 58 Year
  Sex: Male
  Weight: 88 kg

DRUGS (7)
  1. GEMZAR [Suspect]
     Indication: PANCREATIC CARCINOMA
     Dosage: 1000 MG/M2, UNK
     Route: 042
     Dates: start: 20060907, end: 20061012
  2. NAVOBAN [Concomitant]
  3. INSULIN [Concomitant]
     Route: 058
  4. DOXEPIN HCL [Concomitant]
  5. ENAHEXAL [Concomitant]
  6. PROPRANOLOL [Concomitant]
  7. PREGABALIN [Concomitant]

REACTIONS (8)
  - CHILLS [None]
  - GAMMA-GLUTAMYLTRANSFERASE INCREASED [None]
  - OEDEMA [None]
  - PROTEINURIA [None]
  - PYREXIA [None]
  - RASH [None]
  - TRANSAMINASES INCREASED [None]
  - WEIGHT INCREASED [None]
